FAERS Safety Report 8301111-0 (Version None)
Quarter: 2012Q2

REPORT INFORMATION
  Report Type: 
  Country: None (occurrence: None)
  Receive Date: 20120420
  Receipt Date: 20120411
  Transmission Date: 20120825
  Serious: Yes (Other)
  Sender: FDA-Public Use
  Company Number: BR-ASTRAZENECA-2012SE23994

PATIENT
  Sex: Male

DRUGS (11)
  1. FLUOXETINE [Concomitant]
  2. ISOSORBIDE MONONITRATE [Concomitant]
  3. RANITIDINE HCL [Concomitant]
  4. LIPITOR [Concomitant]
  5. LYRICA [Concomitant]
  6. FERROUS SULFATE TAB [Concomitant]
  7. MULTIVITAMIN [Concomitant]
  8. INSULIN [Concomitant]
  9. ASPIRIN [Concomitant]
  10. BRILINTA [Suspect]
     Indication: ANGIOPLASTY
     Route: 048
     Dates: start: 20120101
  11. LEVOTHYROXINE SODIUM [Concomitant]

REACTIONS (2)
  - OCULAR ISCHAEMIC SYNDROME [None]
  - EYE HAEMORRHAGE [None]
